FAERS Safety Report 16350499 (Version 1)
Quarter: 2019Q2

REPORT INFORMATION
  Report Type: Report from Study
  Country: JP (occurrence: JP)
  Receive Date: 20190524
  Receipt Date: 20190524
  Transmission Date: 20190711
  Serious: Yes (Other)
  Sender: FDA-Public Use
  Company Number: JP-ALEXION PHARMACEUTICALS INC.-A201907420

PATIENT

DRUGS (18)
  1. SOLIRIS [Suspect]
     Active Substance: ECULIZUMAB
     Indication: PAROXYSMAL NOCTURNAL HAEMOGLOBINURIA
     Dosage: 600 MG, QW
     Route: 042
     Dates: start: 20160829, end: 20160921
  2. SOLIRIS [Suspect]
     Active Substance: ECULIZUMAB
     Dosage: 900 MG, Q2W
     Route: 042
     Dates: start: 20160926
  3. NEORAL [Concomitant]
     Active Substance: CYCLOSPORINE
     Dosage: 100 MG, DAILY
     Route: 065
     Dates: start: 20190220
  4. BONALON [Concomitant]
     Active Substance: ALENDRONATE SODIUM
     Indication: PRODUCT USED FOR UNKNOWN INDICATION
     Dosage: 35 MG, DAILY
     Route: 065
  5. PREDONINE [Concomitant]
     Active Substance: PREDNISOLONE
     Indication: PAROXYSMAL NOCTURNAL HAEMOGLOBINURIA
     Dosage: 5 MG, DAILY
     Route: 065
     Dates: start: 20171227, end: 20181002
  6. PREDNISOLONE. [Concomitant]
     Active Substance: PREDNISOLONE
     Indication: PAROXYSMAL NOCTURNAL HAEMOGLOBINURIA
     Dosage: TOTAL 11MG WITH PREDNISOLONE, DAILY
     Route: 065
     Dates: start: 20190123, end: 20190219
  7. PREDNISOLONE. [Concomitant]
     Active Substance: PREDNISOLONE
     Dosage: TOTAL 12MG WITH PREDNISOLONE, DAILY
     Route: 065
     Dates: start: 20190220
  8. DAIPHEN [Concomitant]
     Active Substance: SULFAMETHOXAZOLE\TRIMETHOPRIM
     Indication: PRODUCT USED FOR UNKNOWN INDICATION
     Dosage: 1 DF, DAILY
     Route: 065
  9. BENIDIPINE HYDROCHLORIDE [Concomitant]
     Active Substance: BENIDIPINE HYDROCHLORIDE
     Indication: PRODUCT USED FOR UNKNOWN INDICATION
     Dosage: 4 MG, DAILY
     Route: 065
  10. PREDONINE [Concomitant]
     Active Substance: PREDNISOLONE
     Dosage: TOTAL 11MG WITH PSL, DAILY
     Route: 065
     Dates: start: 20190123, end: 20190219
  11. NEORAL [Concomitant]
     Active Substance: CYCLOSPORINE
     Indication: PAROXYSMAL NOCTURNAL HAEMOGLOBINURIA
     Dosage: 100 MG, DAILY
     Route: 065
     Dates: start: 20161121, end: 20180515
  12. NEORAL [Concomitant]
     Active Substance: CYCLOSPORINE
     Dosage: 150 MG, DAILY
     Route: 065
     Dates: start: 20180516, end: 20180710
  13. NEORAL [Concomitant]
     Active Substance: CYCLOSPORINE
     Dosage: 200 MG, DAILY
     Route: 065
     Dates: start: 20180711, end: 20180807
  14. NEORAL [Concomitant]
     Active Substance: CYCLOSPORINE
     Dosage: 150 MG, DAILY
     Route: 065
     Dates: start: 20180808, end: 20190122
  15. NEORAL [Concomitant]
     Active Substance: CYCLOSPORINE
     Dosage: 125 MG, DAILY
     Route: 065
     Dates: start: 20190123, end: 20190219
  16. PREDONINE [Concomitant]
     Active Substance: PREDNISOLONE
     Dosage: 10 MG, DAILY
     Route: 065
     Dates: start: 20181003, end: 20190122
  17. PREDONINE [Concomitant]
     Active Substance: PREDNISOLONE
     Dosage: TOTAL 12MG WITH PSL, DAILY
     Route: 065
     Dates: start: 20190220
  18. BAYASPIRIN [Concomitant]
     Active Substance: ASPIRIN
     Indication: PAROXYSMAL NOCTURNAL HAEMOGLOBINURIA
     Dosage: 100 MG, DAILY
     Route: 065

REACTIONS (1)
  - Transfusion [Unknown]

NARRATIVE: CASE EVENT DATE: 201805
